FAERS Safety Report 4990249-1 (Version None)
Quarter: 2006Q2

REPORT INFORMATION
  Report Type: 
  Country: None (occurrence: None)
  Receive Date: 20060503
  Receipt Date: 20050921
  Transmission Date: 20061013
  Serious: Yes (Hospitalization)
  Sender: FDA-Public Use
  Company Number: SEWYE998722SEP05

PATIENT
  Sex: Female

DRUGS (6)
  1. ENBREL [Suspect]
     Indication: RHEUMATOID ARTHRITIS
     Dosage: THE DOSE REGIMEN WAS NOT SPECIFIED
     Route: 058
     Dates: start: 20050202, end: 20050919
  2. IMUREL [Concomitant]
     Dosage: THE DOSE REGIMEN WAS NOT SPECIFIED
     Route: 065
     Dates: end: 20050101
  3. DICLOFENAC SODIUM [Concomitant]
     Route: 065
  4. IMOVANE [Concomitant]
  5. UREA CREAM [Concomitant]
  6. TOCOPHERYL ACETATE [Concomitant]

REACTIONS (2)
  - HALLUCINATIONS, MIXED [None]
  - PSYCHOTIC DISORDER [None]
